FAERS Safety Report 24762526 (Version 2)
Quarter: 2025Q3

REPORT INFORMATION
  Report Type: Spontaneous
  Country: JP (occurrence: US)
  Receive Date: 20241221
  Receipt Date: 20250810
  Transmission Date: 20251020
  Serious: Yes (Death, Other)
  Sender: ALEXION PHARMACEUTICALS
  Company Number: JP-ASTRAZENECA-240143710_064320_P_1

PATIENT

DRUGS (4)
  1. ANDEXXA [Suspect]
     Active Substance: ANDEXANET ALFA
     Indication: Haemorrhage intracranial
  2. ANDEXXA [Suspect]
     Active Substance: ANDEXANET ALFA
  3. ANDEXXA [Suspect]
     Active Substance: ANDEXANET ALFA
  4. ANDEXXA [Suspect]
     Active Substance: ANDEXANET ALFA

REACTIONS (1)
  - Death [Fatal]
